FAERS Safety Report 18485927 (Version 3)
Quarter: 2020Q4

REPORT INFORMATION
  Report Type: Report from Study
  Country: MX (occurrence: MX)
  Receive Date: 20201110
  Receipt Date: 20201124
  Transmission Date: 20210114
  Serious: Yes (Life-Threatening, Hospitalization)
  Sender: FDA-Public Use
  Company Number: NVSC2020MX299341

PATIENT
  Age: 42 Year
  Sex: Male
  Weight: 60 kg

DRUGS (6)
  1. GALVUS MET [Suspect]
     Active Substance: METFORMIN HYDROCHLORIDE\VILDAGLIPTIN
     Indication: DIABETES MELLITUS
     Dosage: 1 DF (50/500 MG) (IN THE MORNING), 2 YEARS AGO AND STOPPED 1 YEAR AGO
     Route: 048
     Dates: start: 2018, end: 2019
  2. GALVUS [Suspect]
     Active Substance: VILDAGLIPTIN
     Indication: DIABETES MELLITUS
     Dosage: 50 MG (IN THE MORNING)
     Route: 048
     Dates: start: 202005
  3. GALVUS MET [Suspect]
     Active Substance: METFORMIN HYDROCHLORIDE\VILDAGLIPTIN
     Dosage: 1 DF (1000/50 MG) (IN THE MORNING) STARTED 1 YEAR AGO AND STOPPED 6 MONTH AGO.
     Route: 048
     Dates: start: 2019, end: 202005
  4. EXFORGE HCT [Suspect]
     Active Substance: AMLODIPINE BESYLATE\HYDROCHLOROTHIAZIDE\VALSARTAN
     Indication: HYPERTENSION
     Dosage: 5/160/12.5 MG, 1 TABLET IN THE MORNING AND IN THE AFTERNOON
     Route: 048
     Dates: start: 2018, end: 20200523
  5. INSULIN [Concomitant]
     Active Substance: INSULIN NOS
     Indication: DIABETES MELLITUS
     Dosage: 16 IU, AT NIGHT
     Route: 058
     Dates: start: 2018
  6. TRESIBA [Concomitant]
     Active Substance: INSULIN DEGLUDEC
     Indication: DIABETES MELLITUS
     Dosage: 16 IU, AT NIGHT
     Route: 058
     Dates: start: 2018

REACTIONS (3)
  - Infarction [Recovered/Resolved]
  - Product availability issue [Unknown]
  - Wrong product administered [Unknown]

NARRATIVE: CASE EVENT DATE: 20200507
